FAERS Safety Report 19802412 (Version 3)
Quarter: 2021Q4

REPORT INFORMATION
  Report Type: Spontaneous
  Country: FR (occurrence: FR)
  Receive Date: 20210908
  Receipt Date: 20211210
  Transmission Date: 20220304
  Serious: Yes (Death, Life-Threatening, Hospitalization, Disabling, Other)
  Sender: FDA-Public Use
  Company Number: FR-BRISTOL-MYERS SQUIBB COMPANY-BMS-2021-087548

PATIENT
  Age: 65 Year
  Sex: Male
  Weight: 80 kg

DRUGS (10)
  1. OPDIVO [Suspect]
     Active Substance: NIVOLUMAB
     Indication: Metastatic malignant melanoma
     Dosage: 88 MILLIGRAM
     Route: 042
     Dates: start: 20210716, end: 20210716
  2. YERVOY [Suspect]
     Active Substance: IPILIMUMAB
     Indication: Metastatic malignant melanoma
     Dosage: 260 MILLIGRAM
     Route: 042
     Dates: start: 20210716, end: 20210716
  3. RIVAROXABAN [Concomitant]
     Active Substance: RIVAROXABAN
     Indication: Arrhythmia
     Dosage: 20 MILLIGRAM
     Route: 048
     Dates: start: 20210804
  4. AMIODARONE [Concomitant]
     Active Substance: AMIODARONE
     Indication: Arrhythmia
     Dosage: 400 MILLIGRAM
     Route: 048
     Dates: start: 20210804
  5. BISOPROLOL [Concomitant]
     Active Substance: BISOPROLOL
     Indication: Arrhythmia
     Dosage: 5 MILLIGRAM
     Route: 048
     Dates: start: 20210804
  6. CANDESARTAN [Concomitant]
     Active Substance: CANDESARTAN
     Indication: Myocardial ischaemia
     Dosage: 16 MILLIGRAM
     Route: 048
  7. EZETIMIBE\SIMVASTATIN [Concomitant]
     Active Substance: EZETIMIBE\SIMVASTATIN
     Indication: Myocardial ischaemia
     Dosage: 10/20 MG
     Route: 048
  8. LEVOTHYROXINE [Concomitant]
     Active Substance: LEVOTHYROXINE
     Indication: Hypothyroidism
     Dosage: 137.5 GRAM
     Route: 048
  9. PREDNISONE [Concomitant]
     Active Substance: PREDNISONE
     Indication: Extradural neoplasm
     Dosage: 80 MILLIGRAM
     Route: 048
     Dates: start: 202106
  10. ESOMEPRAZOLE SODIUM [Concomitant]
     Active Substance: ESOMEPRAZOLE SODIUM
     Indication: Gastrooesophageal reflux disease
     Dosage: 20 MILLIGRAM
     Route: 048

REACTIONS (9)
  - Malignant neoplasm progression [Fatal]
  - Thrombocytopenia [Fatal]
  - Ventricular tachycardia [Recovered/Resolved]
  - Cardiac disorder [Unknown]
  - Paralysis [Unknown]
  - Motor dysfunction [Unknown]
  - Bone pain [Unknown]
  - Incontinence [Unknown]
  - Prescribed overdose [Unknown]

NARRATIVE: CASE EVENT DATE: 20210801
